FAERS Safety Report 23611344 (Version 2)
Quarter: 2024Q1

REPORT INFORMATION
  Report Type: Spontaneous
  Country: US (occurrence: US)
  Receive Date: 20240308
  Receipt Date: 20240318
  Transmission Date: 20240409
  Serious: Yes (Other)
  Sender: FDA-Public Use
  Company Number: US-ELI_LILLY_AND_COMPANY-US202403001398

PATIENT
  Age: 48 Year
  Sex: Male

DRUGS (5)
  1. TRULICITY [Suspect]
     Active Substance: DULAGLUTIDE
     Indication: Type 2 diabetes mellitus
     Dosage: 1.5 MG, UNKNOWN
     Route: 058
  2. METFORMIN [Concomitant]
     Active Substance: METFORMIN HYDROCHLORIDE
     Indication: Blood glucose
  3. METFORMIN [Concomitant]
     Active Substance: METFORMIN HYDROCHLORIDE
     Indication: Blood cholesterol
  4. LOVASTATIN [Concomitant]
     Active Substance: LOVASTATIN
     Indication: Blood glucose
  5. LOVASTATIN [Concomitant]
     Active Substance: LOVASTATIN
     Indication: Blood cholesterol

REACTIONS (4)
  - Osteomyelitis [Unknown]
  - Gangrene [Unknown]
  - Pain in extremity [Unknown]
  - Nail disorder [Recovering/Resolving]
